FAERS Safety Report 6167686-5 (Version None)
Quarter: 2009Q2

REPORT INFORMATION
  Report Type: 
  Country: None (occurrence: None)
  Receive Date: 20090424
  Receipt Date: 20090416
  Transmission Date: 20091009
  Serious: Yes (Other)
  Sender: FDA-Public Use
  Company Number: AR-AMGEN-US343972

PATIENT
  Age: 10 Year
  Sex: Male

DRUGS (2)
  1. ENBREL [Suspect]
     Indication: PSORIATIC ARTHROPATHY
     Route: 058
     Dates: start: 20081101, end: 20090401
  2. FLUFENAMIC ACID/BENZYL NICOTINATE/GLYCOL SALICYLATE/HEPARIN SODIUM [Concomitant]
     Route: 061

REACTIONS (5)
  - ARTHRALGIA [None]
  - ASTHENIA [None]
  - BICYTOPENIA [None]
  - DENGUE FEVER [None]
  - PYREXIA [None]
